FAERS Safety Report 8461888-0 (Version None)
Quarter: 2012Q2

REPORT INFORMATION
  Report Type: 
  Country: None (occurrence: None)
  Receive Date: 20120625
  Receipt Date: 20120619
  Transmission Date: 20120825
  Serious: Yes (Life-Threatening, Hospitalization, Other)
  Sender: FDA-Public Use
  Company Number: JP-ASTELLAS-2012US002505

PATIENT
  Age: 60 Year
  Sex: Male
  Weight: 67 kg

DRUGS (19)
  1. ERLOTINIB HYDROCHLORIDE [Suspect]
     Indication: NON-SMALL CELL LUNG CANCER
     Dosage: 150 MG, UID/QD
     Route: 048
     Dates: start: 20120105, end: 20120119
  2. DEPAS [Concomitant]
     Indication: INSOMNIA
  3. LOXONIN [Concomitant]
     Indication: TUMOUR ASSOCIATED FEVER
     Dosage: UNK
     Route: 065
     Dates: start: 20120129, end: 20120130
  4. LOPEMIN [Concomitant]
     Indication: DIARRHOEA
     Dosage: UNK
     Route: 065
     Dates: start: 20120119, end: 20120121
  5. FRESMIN S [Concomitant]
     Indication: FOLATE DEFICIENCY
     Dosage: UNK
     Route: 065
     Dates: start: 20120131, end: 20120205
  6. YUEKIN KEEP [Concomitant]
     Indication: DEHYDRATION
     Dosage: UNK
     Route: 065
     Dates: start: 20120123, end: 20120127
  7. AZUNOL [Concomitant]
     Indication: DERMATITIS ACNEIFORM
     Dosage: UNK
     Route: 065
     Dates: start: 20120110, end: 20120204
  8. GLYCYRON [Concomitant]
     Indication: ALANINE AMINOTRANSFERASE INCREASED
     Dosage: 6 DF, UID/QD
     Dates: start: 20120131, end: 20120205
  9. PANVITAN [Concomitant]
     Indication: BLOOD FOLATE DECREASED
     Dosage: UNK
     Route: 048
     Dates: start: 20120131, end: 20120205
  10. URINORM [Concomitant]
     Indication: HYPERURICAEMIA
     Dosage: UNK
     Route: 065
     Dates: start: 20040101, end: 20120123
  11. MINOCYCLINE HYDROCHLORIDE [Concomitant]
     Indication: DERMATITIS ACNEIFORM
     Dosage: UNK
     Route: 065
     Dates: start: 20120113, end: 20120123
  12. RESTAMIN KOWA [Concomitant]
     Indication: DERMATITIS ACNEIFORM
     Dosage: UNK
     Route: 065
     Dates: start: 20120110, end: 20120204
  13. DEPAS [Concomitant]
     Indication: ANXIETY
     Dosage: UNK
     Route: 065
     Dates: start: 20120131, end: 20120205
  14. LIPITOR [Concomitant]
     Indication: HYPERLIPIDAEMIA
     Dosage: UNK
     Route: 065
     Dates: start: 20040101, end: 20120123
  15. PLACEBO [Suspect]
     Indication: NON-SMALL CELL LUNG CANCER
     Dosage: UID/QD
     Route: 048
     Dates: start: 20120105, end: 20120119
  16. KERATINAMIN [Concomitant]
     Indication: DERMATITIS ACNEIFORM
     Dosage: UNK
     Route: 065
     Dates: start: 20120110, end: 20120204
  17. GLYCYRON [Concomitant]
     Indication: ASPARTATE AMINOTRANSFERASE INCREASED
  18. CALBLOCK [Concomitant]
     Indication: HYPERTENSION
     Dosage: UNK
     Route: 065
     Dates: start: 20040101, end: 20120123
  19. CANDESARTAN CILEXETIL [Concomitant]
     Indication: HYPERTENSION
     Dosage: UNK
     Route: 065
     Dates: start: 20040101, end: 20120123

REACTIONS (10)
  - ACUTE RESPIRATORY FAILURE [None]
  - LIVER FUNCTION TEST ABNORMAL [None]
  - DEHYDRATION [None]
  - LYMPHANGIOSIS CARCINOMATOSA [None]
  - CARDIOMEGALY [None]
  - PULMONARY EMBOLISM [None]
  - RENAL FAILURE [None]
  - NEOPLASM MALIGNANT [None]
  - PULMONARY OEDEMA [None]
  - CARDIAC FAILURE [None]
